FAERS Safety Report 6542458-8 (Version None)
Quarter: 2010Q1

REPORT INFORMATION
  Report Type: 
  Country: None (occurrence: None)
  Receive Date: 20100119
  Receipt Date: 20100111
  Transmission Date: 20100710
  Serious: Yes (Other)
  Sender: FDA-Public Use
  Company Number: US-PFIZER INC-2010004277

PATIENT

DRUGS (3)
  1. LIPITOR [Suspect]
     Dosage: 80 MG, UNK
     Dates: start: 20090715
  2. LIPITOR [Suspect]
     Dosage: 40 MG, UNK
     Dates: start: 20020101, end: 20090715
  3. COENZYME Q10 [Suspect]
     Dosage: UNK

REACTIONS (9)
  - ATRIAL FIBRILLATION [None]
  - BLOOD CHOLESTEROL INCREASED [None]
  - COUGH [None]
  - IMMUNE SYSTEM DISORDER [None]
  - OROPHARYNGEAL PAIN [None]
  - PAIN [None]
  - PARALYSIS [None]
  - PNEUMONIA [None]
  - POLYMYALGIA RHEUMATICA [None]
